FAERS Safety Report 9525129 (Version 1)
Quarter: 2013Q3

REPORT INFORMATION
  Report Type: Spontaneous
  Country: FR (occurrence: FR)
  Receive Date: 20130916
  Receipt Date: 20130916
  Transmission Date: 20140515
  Serious: Yes (Hospitalization, Other)
  Sender: FDA-Public Use
  Company Number: FR-ELI_LILLY_AND_COMPANY-FR201309000844

PATIENT
  Age: 45 Year
  Sex: Female

DRUGS (14)
  1. PROZAC [Suspect]
     Indication: ANXIETY
     Dosage: 40 MG, QD
     Route: 048
     Dates: start: 20130506
  2. PROZAC [Suspect]
     Indication: DEPRESSION
  3. TEGRETOL [Suspect]
     Indication: ANXIETY
     Dosage: 200 MG, QD
     Route: 048
     Dates: start: 20130610, end: 20130616
  4. TEGRETOL [Suspect]
     Indication: DEPRESSION
     Dosage: 400 MG, QD
     Route: 048
     Dates: start: 20130617, end: 20130718
  5. TERCIAN [Suspect]
     Indication: ANXIETY
     Dosage: 25 MG, QD
     Route: 048
     Dates: end: 20130718
  6. TERCIAN [Suspect]
     Indication: DEPRESSION
  7. DEPAMIDE [Concomitant]
     Indication: ANXIETY
     Dosage: 1 DF, UNKNOWN
     Dates: start: 20130506, end: 20130513
  8. DEPAMIDE [Concomitant]
     Indication: DEPRESSION
  9. LITHIUM [Concomitant]
     Indication: ANXIETY
     Dosage: 2 DF, QD
     Dates: start: 20130521, end: 20130528
  10. LITHIUM [Concomitant]
     Indication: DEPRESSION
  11. XANAX [Concomitant]
     Indication: ANXIETY
     Dosage: 0.75 MG, QD
  12. XANAX [Concomitant]
     Indication: DEPRESSION
  13. STILNOX [Concomitant]
     Indication: INSOMNIA
     Dosage: 10 MG, QD
  14. CYMBALTA [Concomitant]
     Dosage: 1 DF, UNKNOWN

REACTIONS (5)
  - Drug reaction with eosinophilia and systemic symptoms [Recovering/Resolving]
  - Cholestasis [Recovering/Resolving]
  - Hepatocellular injury [Recovered/Resolved]
  - Hypogammaglobulinaemia [Unknown]
  - Hypertriglyceridaemia [Unknown]
